FAERS Safety Report 25954875 (Version 1)
Quarter: 2025Q4

REPORT INFORMATION
  Report Type: Spontaneous
  Country: EU (occurrence: EU)
  Receive Date: 20251024
  Receipt Date: 20251024
  Transmission Date: 20260117
  Serious: Yes (Life-Threatening, Hospitalization, Other)
  Sender: UNICHEM
  Company Number: EU-UNICHEM LABORATORIES LIMITED-UNI-2025-HR-003551

PATIENT

DRUGS (2)
  1. BISOPROLOL [Suspect]
     Active Substance: BISOPROLOL
     Indication: Hypertension
     Dosage: 2.5 MILLIGRAM
     Route: 065
  2. PERINDOPRIL/IN DAPAMIDE/AMLODIPINE [Concomitant]
     Indication: Hypertension
     Dosage: 10 MILLIGRAM/2.5 MILLIGRAM/10 MILLIGRAM
     Route: 065

REACTIONS (1)
  - Phaeochromocytoma crisis [Recovering/Resolving]
